FAERS Safety Report 4914273-X (Version None)
Quarter: 2006Q1

REPORT INFORMATION
  Report Type: 
  Country: None (occurrence: None)
  Receive Date: 20060113
  Receipt Date: 20051106
  Transmission Date: 20060701
  Serious: No
  Sender: FDA-Public Use
  Company Number: 2005SP003877

PATIENT
  Age: 28 Year
  Sex: Female
  Weight: 72.5755 kg

DRUGS (5)
  1. LUNESTA [Suspect]
     Indication: INSOMNIA
     Dosage: PRN; ORAL
     Route: 048
     Dates: start: 20051101
  2. PREVACID [Concomitant]
  3. VITAMIN E [Concomitant]
  4. MULTIVITAMIN [Concomitant]
  5. ORTHO-NOVUM 7/7/7-21 [Concomitant]

REACTIONS (1)
  - DYSGEUSIA [None]
